FAERS Safety Report 21959437 (Version 2)
Quarter: 2023Q1

REPORT INFORMATION
  Report Type: Spontaneous
  Country: US (occurrence: US)
  Receive Date: 20230206
  Receipt Date: 20230228
  Transmission Date: 20230418
  Serious: Yes (Other)
  Sender: FDA-Public Use
  Company Number: US-MERIDIAN MEDICAL TECHNOLOGIES, LLC-2023MMT00001

PATIENT
  Age: 49 Year
  Sex: Female
  Weight: 69.6 kg

DRUGS (10)
  1. MIDAZOLAM [Suspect]
     Active Substance: MIDAZOLAM
     Indication: Anaesthesia
     Dosage: 2 MG, ONCE
     Route: 042
     Dates: start: 20230106, end: 20230106
  2. MIDAZOLAM [Suspect]
     Active Substance: MIDAZOLAM
     Indication: Anticipatory anxiety
  3. FENTANYL CITRATE [Suspect]
     Active Substance: FENTANYL CITRATE
     Indication: Anaesthesia
     Dosage: 50 ?G, ONCE
     Route: 042
     Dates: start: 20230106, end: 20230106
  4. FENTANYL CITRATE [Suspect]
     Active Substance: FENTANYL CITRATE
     Indication: Pain management
     Dosage: 50 ?G, ONCE
     Route: 042
     Dates: start: 20230106, end: 20230106
  5. ONDANSETRON [Suspect]
     Active Substance: ONDANSETRON
     Indication: Anaesthesia
     Dosage: 4 MG, ONCE
     Route: 042
     Dates: start: 20230106, end: 20230106
  6. ONDANSETRON [Suspect]
     Active Substance: ONDANSETRON
     Indication: Nausea
  7. DECADRON [Suspect]
     Active Substance: DEXAMETHASONE
     Indication: Anaesthesia
     Dosage: 4 MG, ONCE
     Route: 042
     Dates: start: 20230106, end: 20230106
  8. DECADRON [Suspect]
     Active Substance: DEXAMETHASONE
     Indication: Nausea
  9. DIPRIVAN [Suspect]
     Active Substance: PROPOFOL
     Indication: Sedation
     Dosage: 20 ML, ONCE
     Route: 042
     Dates: start: 20230106, end: 20230106
  10. ESTRADIOL [Concomitant]
     Active Substance: ESTRADIOL
     Indication: Anaesthesia

REACTIONS (3)
  - Urticaria [Recovered/Resolved]
  - Throat irritation [Recovered/Resolved]
  - Hypersensitivity [Recovered/Resolved]

NARRATIVE: CASE EVENT DATE: 20230106
